FAERS Safety Report 10350826 (Version 2)
Quarter: 2014Q4

REPORT INFORMATION
  Report Type: Spontaneous
  Country: US (occurrence: US)
  Receive Date: 20140730
  Receipt Date: 20141125
  Transmission Date: 20150528
  Serious: No
  Sender: FDA-Public Use
  Company Number: US-BRISTOL-MYERS SQUIBB COMPANY-20835211

PATIENT
  Age: 70 Year
  Sex: Male
  Weight: 120.18 kg

DRUGS (3)
  1. ATENOLOL. [Concomitant]
     Active Substance: ATENOLOL
  2. FARXIGA [Suspect]
     Active Substance: DAPAGLIFLOZIN PROPANEDIOL
     Dosage: TABLETS?PREVIOUS-5MG SAMPLE
  3. HYDRALAZINE [Concomitant]
     Active Substance: HYDRALAZINE HYDROCHLORIDE

REACTIONS (6)
  - Drug administration error [Unknown]
  - Urine output increased [Unknown]
  - Rhinorrhoea [Unknown]
  - Micturition urgency [Unknown]
  - Urinary incontinence [Unknown]
  - Thirst [Unknown]
